FAERS Safety Report 6556369-5 (Version None)
Quarter: 2010Q1

REPORT INFORMATION
  Report Type: 
  Country: None (occurrence: None)
  Receive Date: 20100125
  Receipt Date: 20100113
  Transmission Date: 20100710
  Serious: Yes (Hospitalization)
  Sender: FDA-Public Use
  Company Number: 93748

PATIENT
  Age: 53 Year
  Sex: Male

DRUGS (1)
  1. BUPRENORPHINE HCL [Suspect]

REACTIONS (5)
  - CAROTID ARTERY OCCLUSION [None]
  - CELLULITIS [None]
  - DRUG ABUSE [None]
  - EMBOLIC STROKE [None]
  - WRONG TECHNIQUE IN DRUG USAGE PROCESS [None]
